FAERS Safety Report 25670752 (Version 1)
Quarter: 2025Q3

REPORT INFORMATION
  Report Type: Spontaneous
  Country: GB (occurrence: GB)
  Receive Date: 20250812
  Receipt Date: 20250812
  Transmission Date: 20251021
  Serious: Yes (Other)
  Sender: ELI LILLY AND COMPANY
  Company Number: None

PATIENT
  Sex: Female

DRUGS (1)
  1. MOUNJARO [Suspect]
     Active Substance: TIRZEPATIDE
     Indication: Product used for unknown indication
     Dosage: 5 MG, WEEKLY (1/W)
     Route: 065
     Dates: start: 20250525

REACTIONS (6)
  - Peripheral swelling [Recovered/Resolved]
  - Pyrexia [Recovered/Resolved]
  - Pain in extremity [Not Recovered/Not Resolved]
  - Erythema [Unknown]
  - Limb mass [Unknown]
  - Localised infection [Unknown]
